FAERS Safety Report 7496929-0 (Version None)
Quarter: 2011Q2

REPORT INFORMATION
  Report Type: 
  Country: None (occurrence: None)
  Receive Date: 20110523
  Receipt Date: 20110511
  Transmission Date: 20111010
  Serious: Yes (Hospitalization)
  Sender: FDA-Public Use
  Company Number: SE-MERCK-1105SWE00041

PATIENT
  Age: 62 Year
  Sex: Male

DRUGS (5)
  1. ATENOLOL [Concomitant]
     Route: 048
  2. ESCITALOPRAM OXALATE [Concomitant]
     Route: 048
  3. ZOCOR [Suspect]
     Route: 048
     Dates: end: 20110116
  4. GLIMEPIRIDE [Concomitant]
     Route: 048
  5. METFORMIN [Concomitant]
     Route: 048

REACTIONS (2)
  - ANGIOEDEMA [None]
  - PHARYNGEAL OEDEMA [None]
